FAERS Safety Report 4586952-8 (Version None)
Quarter: 2005Q1

REPORT INFORMATION
  Report Type: 
  Country: None (occurrence: None)
  Receive Date: 20050218
  Receipt Date: 20050210
  Transmission Date: 20050727
  Serious: Yes (Death, Hospitalization)
  Sender: FDA-Public Use
  Company Number: DE-BRISTOL-MYERS SQUIBB COMPANY-12857686

PATIENT
  Age: 69 Year

DRUGS (4)
  1. CISPLATIN [Suspect]
     Indication: NON-SMALL CELL LUNG CANCER
     Route: 042
     Dates: start: 20040719, end: 20040830
  2. PACLITAXEL [Suspect]
     Indication: NON-SMALL CELL LUNG CANCER
     Route: 042
     Dates: start: 20040719, end: 20040928
  3. RADIOTHERAPY [Suspect]
     Dosage: DOSE:  2 X 45 GY/DAY
     Dates: start: 20040920, end: 20041008
  4. VINORELBINE [Concomitant]
     Dates: start: 20040921, end: 20040928

REACTIONS (6)
  - AMNESIA [None]
  - ARRHYTHMIA [None]
  - CARDIAC FAILURE [None]
  - CIRCULATORY COLLAPSE [None]
  - CONCUSSION [None]
  - FACIAL BONES FRACTURE [None]
